FAERS Safety Report 7646786-4 (Version None)
Quarter: 2011Q3

REPORT INFORMATION
  Report Type: 
  Country: None (occurrence: None)
  Receive Date: 20110801
  Receipt Date: 20110727
  Transmission Date: 20111222
  Serious: Yes (Hospitalization)
  Sender: FDA-Public Use
  Company Number: US-AMGEN-USASP2011038222

PATIENT
  Sex: Male

DRUGS (17)
  1. CEPACOL                            /00104701/ [Concomitant]
  2. PREVACID [Concomitant]
  3. PERIDEX                            /00016001/ [Concomitant]
  4. MULTIVITAMIN                       /00097801/ [Concomitant]
  5. COMBIVENT [Concomitant]
  6. VITAMIN D [Concomitant]
  7. NPLATE [Suspect]
     Indication: IDIOPATHIC THROMBOCYTOPENIC PURPURA
     Dosage: UNK
     Dates: start: 20110101
  8. HYDROMORPHONE HCL [Concomitant]
  9. CALCIUM CARBONATE [Concomitant]
  10. LOMOTIL [Concomitant]
  11. DIPHENHYDRAMINE HCL [Concomitant]
  12. METOPROLOL TARTRATE [Concomitant]
  13. PREDNISONE [Concomitant]
  14. TYLENOL (CAPLET) [Concomitant]
  15. GUAIFENESIN DM [Concomitant]
  16. HYDRALAZINE HCL [Concomitant]
  17. SODIUM CHLORIDE [Concomitant]

REACTIONS (3)
  - BONE CANCER METASTATIC [None]
  - CONVULSION [None]
  - HOSPITALISATION [None]
